FAERS Safety Report 9438727 (Version 1)
Quarter: 2013Q3

REPORT INFORMATION
  Report Type: Spontaneous
  Country: US (occurrence: US)
  Receive Date: 20130802
  Receipt Date: 20130802
  Transmission Date: 20140515
  Serious: Yes (Disabling)
  Sender: FDA-Public Use
  Company Number: US-EISAI INC-AP356-00038-SPO-US

PATIENT
  Sex: Female
  Weight: 75 kg

DRUGS (2)
  1. BELVIQ (LORCASERIN HYDROCHLORIDE) [Suspect]
     Indication: WEIGHT DECREASED
     Route: 048
     Dates: start: 20130724, end: 20130726
  2. LOSARTAN HYDROCHLOROTHIAZIDE [Concomitant]
     Dosage: 100/12.5 UNITS NOT PROVIDED

REACTIONS (3)
  - Disturbance in attention [Unknown]
  - Feeling drunk [Unknown]
  - Euphoric mood [Unknown]
